FAERS Safety Report 25970884 (Version 1)
Quarter: 2025Q4

REPORT INFORMATION
  Report Type: Spontaneous
  Country: US (occurrence: US)
  Receive Date: 20251028
  Receipt Date: 20251028
  Transmission Date: 20260118
  Serious: No
  Sender: STRIDES
  Company Number: US-STRIDES ARCOLAB LIMITED-2024SP013367

PATIENT
  Sex: Male

DRUGS (2)
  1. POTASSIUM CITRATE [Suspect]
     Active Substance: POTASSIUM CITRATE
     Indication: Product used for unknown indication
     Dosage: UNK
     Route: 065
  2. POTASSIUM CITRATE [Suspect]
     Active Substance: POTASSIUM CITRATE
     Dosage: UNK
     Route: 065

REACTIONS (4)
  - Retching [Unknown]
  - Foreign body in throat [Unknown]
  - Product leakage [Unknown]
  - Poor quality product administered [Unknown]
